FAERS Safety Report 20894619 (Version 1)
Quarter: 2022Q2

REPORT INFORMATION
  Report Type: Spontaneous
  Country: EC (occurrence: EC)
  Receive Date: 20220531
  Receipt Date: 20220531
  Transmission Date: 20220721
  Serious: Yes (Other)
  Sender: FDA-Public Use
  Company Number: EC-BAYER-2022P003582

PATIENT
  Age: 60 Year
  Sex: Male

DRUGS (1)
  1. ULTRAVIST [Suspect]
     Active Substance: IOPROMIDE
     Indication: Computerised tomogram abdomen
     Dosage: 70 ML

REACTIONS (3)
  - Respiratory distress [Recovered/Resolved]
  - Sneezing [Recovered/Resolved]
  - Urticaria [Recovered/Resolved]
